FAERS Safety Report 15619639 (Version 1)
Quarter: 2018Q4

REPORT INFORMATION
  Report Type: Report from Study
  Country: IL (occurrence: IL)
  Receive Date: 20181115
  Receipt Date: 20181115
  Transmission Date: 20190205
  Serious: Yes (Other)
  Sender: FDA-Public Use
  Company Number: IL-TEVA-2018-IL-973968

PATIENT
  Age: 68 Year
  Sex: Male
  Weight: 84 kg

DRUGS (2)
  1. ETANERCEPT [Suspect]
     Active Substance: ETANERCEPT
     Indication: PSORIASIS
     Route: 065
  2. METHOTREXATE. [Suspect]
     Active Substance: METHOTREXATE
     Indication: PSORIASIS
     Route: 065

REACTIONS (1)
  - Treatment failure [Unknown]
